FAERS Safety Report 15946684 (Version 1)
Quarter: 2019Q1

REPORT INFORMATION
  Report Type: Spontaneous
  Country: US (occurrence: US)
  Receive Date: 20190212
  Receipt Date: 20190212
  Transmission Date: 20190417
  Serious: No
  Sender: FDA-Public Use
  Company Number: US-AMGEN-USASP2019018531

PATIENT
  Age: 52 Year
  Sex: Female

DRUGS (7)
  1. PROBIOTIC [Concomitant]
     Active Substance: PROBIOTICS NOS
     Dosage: UNK UNK, QD
  2. VITAMIN B2 [Concomitant]
     Active Substance: RIBOFLAVIN
  3. PROLIA [Suspect]
     Active Substance: DENOSUMAB
     Indication: PROPHYLAXIS
     Dosage: 60 MG, Q6MO
     Route: 065
  4. LUPRON [Concomitant]
     Active Substance: LEUPROLIDE ACETATE
  5. CLARITINE [Concomitant]
     Active Substance: LORATADINE
     Indication: HYPERSENSITIVITY
     Dosage: UNK
  6. ANASTRAZOLE [Concomitant]
     Active Substance: ANASTROZOLE
     Dosage: UNK
     Dates: end: 2018
  7. TURMERIC [Concomitant]
     Active Substance: HERBALS\TURMERIC
     Indication: INFLAMMATION

REACTIONS (12)
  - Peripheral swelling [Unknown]
  - Constipation [Unknown]
  - Muscle spasms [Unknown]
  - Dysphonia [Unknown]
  - Off label use [Unknown]
  - Mobility decreased [Unknown]
  - Pain in extremity [Unknown]
  - Weight increased [Unknown]
  - Adverse drug reaction [Unknown]
  - Pain in jaw [Unknown]
  - Sleep disorder due to a general medical condition [Unknown]
  - Arthralgia [Unknown]

NARRATIVE: CASE EVENT DATE: 2018
